FAERS Safety Report 15751543 (Version 1)
Quarter: 2018Q4

REPORT INFORMATION
  Report Type: Spontaneous
  Country: CA (occurrence: CA)
  Receive Date: 20181221
  Receipt Date: 20181221
  Transmission Date: 20190205
  Serious: Yes (Other)
  Sender: FDA-Public Use
  Company Number: CA-BAYER-2018-240065

PATIENT
  Age: 25 Year
  Sex: Female
  Weight: 51.25 kg

DRUGS (2)
  1. MIRENA [Suspect]
     Active Substance: LEVONORGESTREL
     Indication: CONTRACEPTION
     Dosage: 20 MCG/24HR, CONT
     Route: 015
  2. MIRENA [Suspect]
     Active Substance: LEVONORGESTREL
     Indication: CONTRACEPTION

REACTIONS (11)
  - Cervix carcinoma [Recovering/Resolving]
  - Depression [Recovering/Resolving]
  - Mood swings [Recovering/Resolving]
  - Acne [Recovering/Resolving]
  - Alopecia [Recovering/Resolving]
  - Photophobia [Recovering/Resolving]
  - Vaginal haemorrhage [Recovering/Resolving]
  - Breast pain [Recovering/Resolving]
  - Uterine pain [Recovering/Resolving]
  - Uterine spasm [Recovering/Resolving]
  - Vaginal infection [Recovering/Resolving]
